FAERS Safety Report 7555856-0 (Version None)
Quarter: 2011Q2

REPORT INFORMATION
  Report Type: 
  Country: None (occurrence: None)
  Receive Date: 20110618
  Receipt Date: 20110603
  Transmission Date: 20111010
  Serious: Yes (Hospitalization)
  Sender: FDA-Public Use
  Company Number: ES-BAYER-2011-049930

PATIENT
  Age: 30 Year
  Sex: Female

DRUGS (2)
  1. NAPROXEN SODIUM [Suspect]
     Indication: DYSMENORRHOEA
     Dosage: 550 MG, TID
     Route: 048
     Dates: start: 20110311
  2. OMEPRAZOLE [Concomitant]

REACTIONS (3)
  - MELAENA [None]
  - DUODENAL ULCER [None]
  - SMALL INTESTINE CARCINOMA [None]
